FAERS Safety Report 5168147-2 (Version None)
Quarter: 2006Q4

REPORT INFORMATION
  Report Type: 
  Country: None (occurrence: None)
  Receive Date: 20061130
  Receipt Date: 20061024
  Transmission Date: 20070319
  Serious: Yes (Death)
  Sender: FDA-Public Use
  Company Number: AND_AAPCC_2006_1010

PATIENT
  Age: 12 Month
  Sex: Female

DRUGS (3)
  1. ACETAMINOPHEN AND HYDROCODONE BITARTRATE [Suspect]
     Dosage: DF, 047
  2. CYCLOBENZAPRINE HCL [Suspect]
     Dosage: DF, 047
  3. TRAMADOL HCL [Suspect]
     Dosage: DF, 047

REACTIONS (4)
  - APNOEA [None]
  - CARDIO-RESPIRATORY ARREST [None]
  - COMA [None]
  - CONVULSION [None]
